FAERS Safety Report 6956098-X (Version None)
Quarter: 2010Q3

REPORT INFORMATION
  Report Type: 
  Country: None (occurrence: None)
  Receive Date: 20100830
  Receipt Date: 20100819
  Transmission Date: 20110219
  Serious: Yes (Hospitalization, Other)
  Sender: FDA-Public Use
  Company Number: US-WYE-H17102710

PATIENT

DRUGS (2)
  1. AMIODARONE [Suspect]
     Dosage: UNKNOWN
     Dates: start: 20020101
  2. SYNTHROID [Suspect]
     Indication: HYPOTHYROIDISM
     Dates: start: 20020101

REACTIONS (1)
  - HEART RATE INCREASED [None]
